FAERS Safety Report 5416044-7 (Version None)
Quarter: 2007Q3

REPORT INFORMATION
  Report Type: 
  Country: None (occurrence: None)
  Receive Date: 20070815
  Receipt Date: 20070810
  Transmission Date: 20080115
  Serious: Yes (Death)
  Sender: FDA-Public Use
  Company Number: FR-ABBOTT-07P-056-0377559-00

PATIENT
  Age: 61 Year
  Sex: Male

DRUGS (4)
  1. DEPAKOTE [Suspect]
     Indication: BIPOLAR DISORDER
     Route: 048
     Dates: start: 20070702
  2. PAROXETINE HYDROCHLORIDE [Concomitant]
     Indication: BIPOLAR DISORDER
     Route: 048
     Dates: start: 20050101
  3. ZOLPIDEM TARTRATE [Concomitant]
     Indication: DRUG USE FOR UNKNOWN INDICATION
     Route: 048
     Dates: start: 20050101
  4. ANTI-HIV DRUGS NOS [Concomitant]
     Indication: ACQUIRED IMMUNODEFICIENCY SYNDROME
     Route: 065

REACTIONS (1)
  - SUDDEN DEATH [None]
